FAERS Safety Report 6157779-0 (Version None)
Quarter: 2009Q2

REPORT INFORMATION
  Report Type: 
  Country: None (occurrence: None)
  Receive Date: 20090414
  Receipt Date: 20090402
  Transmission Date: 20091009
  Serious: No
  Sender: FDA-Public Use
  Company Number: 2009002834

PATIENT
  Age: 29 Year
  Sex: Male

DRUGS (1)
  1. FENTORA [Suspect]
     Dosage: BU
     Route: 002

REACTIONS (2)
  - MEDICATION ERROR [None]
  - REFUSAL OF TREATMENT BY PATIENT [None]
